FAERS Safety Report 4665898-0 (Version None)
Quarter: 2005Q2

REPORT INFORMATION
  Report Type: 
  Country: None (occurrence: None)
  Receive Date: 20050516
  Receipt Date: 20050516
  Transmission Date: 20051028
  Serious: Yes (Hospitalization)
  Sender: FDA-Public Use
  Company Number: None

PATIENT
  Age: 25 Year
  Sex: Female
  Weight: 72 kg

DRUGS (2)
  1. LAMOTRIGINE [Suspect]
     Indication: DRUG TOXICITY
     Dosage: 200 MG BID PO
     Route: 048
     Dates: start: 20050130
  2. VALOPROIC ACID [Concomitant]

REACTIONS (8)
  - BLOOD CREATINE INCREASED [None]
  - COORDINATION ABNORMAL [None]
  - DIZZINESS [None]
  - FALL [None]
  - GAIT DISTURBANCE [None]
  - NYSTAGMUS [None]
  - TREMOR [None]
  - VOMITING [None]
